FAERS Safety Report 21022773 (Version 1)
Quarter: 2022Q2

REPORT INFORMATION
  Report Type: Spontaneous
  Country: US (occurrence: US)
  Receive Date: 20220629
  Receipt Date: 20220629
  Transmission Date: 20220721
  Serious: Yes (Other)
  Sender: FDA-Public Use
  Company Number: US-INTRA-CELLULAR THERAPIES, INC.-2022ICT00687

PATIENT
  Sex: Female

DRUGS (1)
  1. CAPLYTA [Suspect]
     Active Substance: LUMATEPERONE
     Dosage: 42 MG

REACTIONS (2)
  - Paralysis [Unknown]
  - Sedation [Unknown]
